FAERS Safety Report 13483883 (Version 1)
Quarter: 2017Q2

REPORT INFORMATION
  Report Type: Spontaneous
  Country: US (occurrence: US)
  Receive Date: 20170426
  Receipt Date: 20170426
  Transmission Date: 20170830
  Serious: No
  Sender: FDA-Public Use
  Company Number: PHEH2017US011796

PATIENT
  Age: 62 Year
  Sex: Female

DRUGS (2)
  1. LETROZOLE. [Suspect]
     Active Substance: LETROZOLE
     Indication: PRODUCT USED FOR UNKNOWN INDICATION
     Dosage: UNK
     Route: 065
  2. IBRANCE [Suspect]
     Active Substance: PALBOCICLIB
     Indication: PRODUCT USED FOR UNKNOWN INDICATION
     Dosage: 1 DF, QMO (1 DAILY FOR 21 DAYS ON AND 7 DAYS OFF)
     Route: 065

REACTIONS (12)
  - White blood cell count decreased [Unknown]
  - Oral pain [Unknown]
  - Decreased appetite [Unknown]
  - Eyelids pruritus [Unknown]
  - Lacrimation increased [Unknown]
  - Weight decreased [Unknown]
  - Tongue coated [Not Recovered/Not Resolved]
  - Dysphagia [Unknown]
  - Flushing [Unknown]
  - Nausea [Unknown]
  - Dysgeusia [Unknown]
  - Erythema [Unknown]
